FAERS Safety Report 10902408 (Version 1)
Quarter: 2015Q1

REPORT INFORMATION
  Report Type: Spontaneous
  Country: JP (occurrence: JP)
  Receive Date: 20150310
  Receipt Date: 20150310
  Transmission Date: 20150721
  Serious: Yes (Hospitalization, Other)
  Sender: FDA-Public Use
  Company Number: JP-ELI_LILLY_AND_COMPANY-JP201503001594

PATIENT
  Age: 70 Year
  Sex: Male

DRUGS (2)
  1. DOCETAXEL. [Concomitant]
     Active Substance: DOCETAXEL
     Indication: METASTASES TO LUNG
     Dosage: 80 MG/M2, OTHER
     Dates: start: 201211
  2. GEMZAR [Suspect]
     Active Substance: GEMCITABINE HYDROCHLORIDE
     Indication: METASTASES TO LUNG
     Dosage: 800 MG/M2, OTHER
     Route: 042
     Dates: start: 201211

REACTIONS (3)
  - Pneumothorax [Unknown]
  - Neutrophil count decreased [Unknown]
  - Pleural disorder [Unknown]

NARRATIVE: CASE EVENT DATE: 2012
